FAERS Safety Report 8663926 (Version 5)
Quarter: 2014Q2

REPORT INFORMATION
  Report Type: Spontaneous
  Country: US (occurrence: US)
  Receive Date: 20120713
  Receipt Date: 20140429
  Transmission Date: 20141212
  Serious: Yes (Disabling)
  Sender: FDA-Public Use
  Company Number: US-009507513-1103USA03600

PATIENT
  Sex: Male
  Weight: 97.98 kg

DRUGS (2)
  1. PROPECIA [Suspect]
     Indication: ANDROGENETIC ALOPECIA
     Dosage: 1 MG, QD
     Route: 048
     Dates: start: 200609, end: 200808
  2. METOPROLOL [Concomitant]
     Indication: HYPERTENSION

REACTIONS (26)
  - Anxiety [Not Recovered/Not Resolved]
  - Erectile dysfunction [Not Recovered/Not Resolved]
  - Muscle twitching [Unknown]
  - Muscle atrophy [Unknown]
  - Testicular pain [Unknown]
  - Atrophy [Unknown]
  - Penis disorder [Unknown]
  - Depressed mood [Unknown]
  - Transaminases increased [Unknown]
  - Tachycardia [Unknown]
  - Libido decreased [Not Recovered/Not Resolved]
  - Organic erectile dysfunction [Unknown]
  - Benign neoplasm of skin [Unknown]
  - Hyperlipidaemia [Unknown]
  - Hypothyroidism [Not Recovered/Not Resolved]
  - Dizziness [Recovered/Resolved]
  - Palpitations [Unknown]
  - Semen volume decreased [Unknown]
  - Blood lactate dehydrogenase increased [Unknown]
  - Testicular atrophy [Unknown]
  - Sperm concentration decreased [Unknown]
  - Spermatozoa abnormal [Unknown]
  - Dissociation [Not Recovered/Not Resolved]
  - Adjustment disorder [Unknown]
  - Angiolipoma [Unknown]
  - Sexual dysfunction [Not Recovered/Not Resolved]
